FAERS Safety Report 18300148 (Version 47)
Quarter: 2025Q3

REPORT INFORMATION
  Report Type: Report from Study
  Country: US (occurrence: US)
  Receive Date: 20200923
  Receipt Date: 20250825
  Transmission Date: 20251020
  Serious: Yes (Hospitalization, Other)
  Sender: TAKEDA
  Company Number: US-SHIRE-US202030633

PATIENT
  Age: 72 Year
  Sex: Female
  Weight: 78 kg

DRUGS (84)
  1. HUMAN IMMUNOGLOBULIN G [Suspect]
     Active Substance: HUMAN IMMUNOGLOBULIN G
     Indication: Immunodeficiency common variable
     Dosage: 35 GRAM, Q4WEEKS
  2. HUMAN IMMUNOGLOBULIN G [Suspect]
     Active Substance: HUMAN IMMUNOGLOBULIN G
     Dosage: 40 GRAM, Q4WEEKS
  3. HUMAN IMMUNOGLOBULIN G [Suspect]
     Active Substance: HUMAN IMMUNOGLOBULIN G
     Dosage: 40 GRAM, Q3WEEKS
  4. DIPHENHYDRAMINE [Concomitant]
     Active Substance: DIPHENHYDRAMINE
  5. TRAMADOL HCL [Concomitant]
     Active Substance: TRAMADOL HYDROCHLORIDE
  6. TRELEGY ELLIPTA [Concomitant]
     Active Substance: FLUTICASONE FUROATE\UMECLIDINIUM BROMIDE\VILANTEROL TRIFENATATE
  7. PRAMIPEXOLE DIHYDROCHLORIDE [Concomitant]
     Active Substance: PRAMIPEXOLE DIHYDROCHLORIDE
  8. DESVENLAFAXINE [Concomitant]
     Active Substance: DESVENLAFAXINE
  9. BUDESONIDE [Concomitant]
     Active Substance: BUDESONIDE
  10. ALBUTEROL SULFATE [Concomitant]
     Active Substance: ALBUTEROL SULFATE
  11. OXYCONTIN [Concomitant]
     Active Substance: OXYCODONE HYDROCHLORIDE
  12. ESOMEPRAZOLE MAGNESIUM [Concomitant]
     Active Substance: ESOMEPRAZOLE MAGNESIUM
  13. COLCHICINE [Concomitant]
     Active Substance: COLCHICINE
  14. KETOCONAZOLE [Concomitant]
     Active Substance: KETOCONAZOLE
  15. SODIUM CHLORIDE [Concomitant]
     Active Substance: SODIUM CHLORIDE
  16. EPINEPHRINE [Concomitant]
     Active Substance: EPINEPHRINE
  17. FLUTICASONE PROPIONATE [Concomitant]
     Active Substance: FLUTICASONE PROPIONATE
  18. ACETAMINOPHEN [Concomitant]
     Active Substance: ACETAMINOPHEN
  19. CALCIUM\CHOLECALCIFEROL [Concomitant]
     Active Substance: CALCIUM\CHOLECALCIFEROL
  20. PLAQUENIL [Concomitant]
     Active Substance: HYDROXYCHLOROQUINE SULFATE
  21. TRIAMCINOLONE ACETONIDE [Concomitant]
     Active Substance: TRIAMCINOLONE ACETONIDE
  22. SINGULAIR [Concomitant]
     Active Substance: MONTELUKAST SODIUM
  23. FLUCELVAX QUADRIVALENT 2017/2018 (INFLUENZA A VIRUS A/DARWIN/11/2021 ( [Concomitant]
     Active Substance: INFLUENZA A VIRUS A/DARWIN/11/2021 (H3N2) ANTIGEN (MDCK CELL DERIVED, PROPIOLACTONE INACTIVATED)\INF
  24. FLUBLOK QUADRIVALENT NOS [Concomitant]
     Active Substance: INFLUENZA VIRUS VACCINE
  25. ALLOPURINOL [Concomitant]
     Active Substance: ALLOPURINOL
  26. METRONIDAZOLE [Concomitant]
     Active Substance: METRONIDAZOLE
  27. VITAMIN B COMPLEX [Concomitant]
     Active Substance: CYANOCOBALAMIN\DEXPANTHENOL\NIACINAMIDE\PYRIDOXINE HYDROCHLORIDE\RIBOFLAVIN 5^-PHOSPHATE SODIUM\THIA
  28. PROAIR HFA [Concomitant]
     Active Substance: ALBUTEROL SULFATE
  29. ABILIFY [Concomitant]
     Active Substance: ARIPIPRAZOLE
  30. XYZAL [Concomitant]
     Active Substance: LEVOCETIRIZINE DIHYDROCHLORIDE
  31. MUCINEX [Concomitant]
     Active Substance: GUAIFENESIN
  32. PERCOCET [Concomitant]
     Active Substance: ACETAMINOPHEN\OXYCODONE HYDROCHLORIDE
  33. BUSPIRONE HCL [Concomitant]
     Active Substance: BUSPIRONE HYDROCHLORIDE
  34. BACLOFEN [Concomitant]
     Active Substance: BACLOFEN
  35. ONDANSETRON HYDROCHLORIDE [Concomitant]
     Active Substance: ONDANSETRON HYDROCHLORIDE
  36. SYMBICORT [Concomitant]
     Active Substance: BUDESONIDE\FORMOTEROL FUMARATE DIHYDRATE
  37. GABAPENTIN [Concomitant]
     Active Substance: GABAPENTIN
  38. TROSPIUM CHLORIDE [Concomitant]
     Active Substance: TROSPIUM CHLORIDE
  39. FLONASE [Concomitant]
     Active Substance: FLUTICASONE PROPIONATE
  40. ALBUTEROL\IPRATROPIUM [Concomitant]
     Active Substance: ALBUTEROL\IPRATROPIUM
  41. DOXYCYCLINE [Concomitant]
     Active Substance: DOXYCYCLINE
  42. ERYTHROMYCIN [Concomitant]
     Active Substance: ERYTHROMYCIN
  43. FOSAMAX [Concomitant]
     Active Substance: ALENDRONATE SODIUM
  44. VITAMIN D [Concomitant]
     Active Substance: VITAMIN D NOS
  45. Tart cherry [Concomitant]
  46. VITAMIN D2 [Concomitant]
     Active Substance: ERGOCALCIFEROL
  47. DICLOFENAC SODIUM [Concomitant]
     Active Substance: DICLOFENAC SODIUM
  48. BENZONATATE [Concomitant]
     Active Substance: BENZONATATE
  49. FLUCONAZOLE [Concomitant]
     Active Substance: FLUCONAZOLE
  50. WELLBUTRIN XL [Concomitant]
     Active Substance: BUPROPION HYDROCHLORIDE
  51. DerMend Moisturizing bruise formula [Concomitant]
  52. OXYGEN [Concomitant]
     Active Substance: OXYGEN
  53. PREDNISONE [Concomitant]
     Active Substance: PREDNISONE
  54. FLUOCINONIDE [Concomitant]
     Active Substance: FLUOCINONIDE
  55. DIPHENHYDRAMINE HYDROCHLORIDE [Concomitant]
     Active Substance: DIPHENHYDRAMINE HYDROCHLORIDE
  56. CERAVE HEALING [Concomitant]
     Active Substance: PETROLATUM
  57. SPIRIVA [Concomitant]
     Active Substance: TIOTROPIUM BROMIDE MONOHYDRATE
  58. LEVOFLOXACIN [Concomitant]
     Active Substance: LEVOFLOXACIN
  59. PRAMIPEXOLE [Concomitant]
     Active Substance: PRAMIPEXOLE
  60. IPRATROPIUM BROMIDE [Concomitant]
     Active Substance: IPRATROPIUM BROMIDE
  61. ADVAIR HFA [Concomitant]
     Active Substance: FLUTICASONE PROPIONATE\SALMETEROL XINAFOATE
  62. AZELASTINE HYDROCHLORIDE [Concomitant]
     Active Substance: AZELASTINE HYDROCHLORIDE
  63. PIPERACILLIN SODIUM\TAZOBACTAM SODIUM [Concomitant]
     Active Substance: PIPERACILLIN SODIUM\TAZOBACTAM SODIUM
  64. ACETAMINOPHEN\HYDROCODONE [Concomitant]
     Active Substance: ACETAMINOPHEN\HYDROCODONE
  65. MYRBETRIQ [Concomitant]
     Active Substance: MIRABEGRON
  66. MIRTAZAPINE [Concomitant]
     Active Substance: MIRTAZAPINE
  67. IRON [Concomitant]
     Active Substance: IRON
  68. TOBRAMYCIN [Concomitant]
     Active Substance: TOBRAMYCIN
  69. MOXIFLOXACIN [Concomitant]
     Active Substance: MOXIFLOXACIN
  70. GEMTESA [Concomitant]
     Active Substance: VIBEGRON
  71. AMLODIPINE BESYLATE [Concomitant]
     Active Substance: AMLODIPINE BESYLATE
  72. PANTOPRAZOLE SODIUM [Concomitant]
     Active Substance: PANTOPRAZOLE SODIUM
  73. VITAMIN D3 [Concomitant]
     Active Substance: CHOLECALCIFEROL
  74. GAVISCON [Concomitant]
     Active Substance: ALUMINUM HYDROXIDE\MAGNESIUM CARBONATE
  75. OXYBUTYNIN CHLORIDE [Concomitant]
     Active Substance: OXYBUTYNIN CHLORIDE
  76. PFIZER-BIONTECH COVID-19 VACCINE [Concomitant]
     Active Substance: TOZINAMERAN
  77. FAMOTIDINE [Concomitant]
     Active Substance: FAMOTIDINE
  78. PNEUMOVAX 23 [Concomitant]
     Active Substance: PNEUMOCOCCAL VACCINE, POLYVALENT 23
  79. CEFUROXIME [Concomitant]
     Active Substance: CEFUROXIME
  80. LEVOCETIRIZINE DIHYDROCHLORIDE [Concomitant]
     Active Substance: LEVOCETIRIZINE DIHYDROCHLORIDE
  81. STIOLTO RESPIMAT [Concomitant]
     Active Substance: OLODATEROL HYDROCHLORIDE\TIOTROPIUM BROMIDE MONOHYDRATE
  82. ASPIRIN [Concomitant]
     Active Substance: ASPIRIN
  83. AMOXICILLIN\CLAVULANIC ACID [Concomitant]
     Active Substance: AMOXICILLIN\CLAVULANIC ACID
  84. PROMETHAZINE [Concomitant]
     Active Substance: PROMETHAZINE HYDROCHLORIDE

REACTIONS (45)
  - Vertebrobasilar artery dissection [Unknown]
  - Coordination abnormal [Unknown]
  - Pneumonia [Not Recovered/Not Resolved]
  - Sepsis [Unknown]
  - Candida pneumonia [Unknown]
  - Lumbar vertebral fracture [Unknown]
  - Influenza [Unknown]
  - Seizure [Unknown]
  - Dysarthria [Unknown]
  - Fall [Recovering/Resolving]
  - Haemoptysis [Unknown]
  - Gastrointestinal infection [Recovered/Resolved]
  - Oral discomfort [Unknown]
  - Nasopharyngitis [Unknown]
  - Productive cough [Unknown]
  - Multiple allergies [Not Recovered/Not Resolved]
  - Neck pain [Not Recovered/Not Resolved]
  - Skin infection [Unknown]
  - Bronchitis [Unknown]
  - Infection [Not Recovered/Not Resolved]
  - Seasonal allergy [Unknown]
  - Fungal infection [Unknown]
  - Dyspnoea exertional [Unknown]
  - Urinary tract infection [Not Recovered/Not Resolved]
  - Mastication disorder [Unknown]
  - Post procedural contusion [Unknown]
  - Oral pain [Unknown]
  - Product dose omission issue [Unknown]
  - Memory impairment [Unknown]
  - Gait disturbance [Unknown]
  - Disturbance in attention [Unknown]
  - Fracture pain [Unknown]
  - Ear infection [Not Recovered/Not Resolved]
  - Sinusitis [Unknown]
  - Upper respiratory tract infection [Unknown]
  - Asthma [Unknown]
  - Somnolence [Unknown]
  - Eye swelling [Unknown]
  - Vertigo [Unknown]
  - Oropharyngeal pain [Unknown]
  - Rash [Unknown]
  - Cough [Recovered/Resolved]
  - Back pain [Not Recovered/Not Resolved]
  - Infusion site pain [Unknown]
  - Pyrexia [Unknown]

NARRATIVE: CASE EVENT DATE: 20230227
